FAERS Safety Report 7223852-9 (Version None)
Quarter: 2011Q1

REPORT INFORMATION
  Report Type: 
  Country: None (occurrence: None)
  Receive Date: 20110112
  Receipt Date: 20101230
  Transmission Date: 20110831
  Serious: No
  Sender: FDA-Public Use
  Company Number: US-ALLERGAN-1016880US

PATIENT
  Age: 71 Year
  Sex: Female

DRUGS (3)
  1. RESTASIS [Suspect]
     Indication: DRY EYE
     Dosage: 1 GTT, QD
     Route: 047
  2. REFRESH TEARS [Concomitant]
     Indication: DRY EYE
  3. REFRESH PLUS [Concomitant]
     Indication: DRY EYE

REACTIONS (3)
  - VISION BLURRED [None]
  - EYE PAIN [None]
  - EYE IRRITATION [None]
